FAERS Safety Report 16399389 (Version 1)
Quarter: 2019Q2

REPORT INFORMATION
  Report Type: Spontaneous
  Country: JP (occurrence: JP)
  Receive Date: 20190606
  Receipt Date: 20190606
  Transmission Date: 20190711
  Serious: Yes (Death, Other)
  Sender: FDA-Public Use
  Company Number: JP-009507513-1706JPN000371J

PATIENT
  Age: 64 Year
  Sex: Male
  Weight: 51 kg

DRUGS (1)
  1. KEYTRUDA [Suspect]
     Active Substance: PEMBROLIZUMAB
     Indication: SQUAMOUS CELL CARCINOMA OF LUNG
     Dosage: 200 MG, Q3W
     Route: 041
     Dates: start: 20170517

REACTIONS (8)
  - Pancreatitis chronic [Fatal]
  - Nephrotic syndrome [Unknown]
  - Pneumonia [Unknown]
  - Renal failure [Unknown]
  - Nephritis [Fatal]
  - Hepatic function abnormal [Recovered/Resolved]
  - Respiratory failure [Fatal]
  - Erythema [Recovered/Resolved]

NARRATIVE: CASE EVENT DATE: 20170601
